FAERS Safety Report 21824975 (Version 1)
Quarter: 2023Q1

REPORT INFORMATION
  Report Type: Spontaneous
  Country: FR (occurrence: FR)
  Receive Date: 20230105
  Receipt Date: 20230105
  Transmission Date: 20230418
  Serious: Yes (Life-Threatening)
  Sender: FDA-Public Use
  Company Number: None

PATIENT
  Age: 64 Year
  Sex: Female
  Weight: 60 kg

DRUGS (6)
  1. ALPRAZOLAM [Suspect]
     Active Substance: ALPRAZOLAM
     Indication: Toxicity to various agents
     Route: 065
     Dates: start: 20221201, end: 20221201
  2. DULOXETINE HYDROCHLORIDE [Suspect]
     Active Substance: DULOXETINE HYDROCHLORIDE
     Indication: Toxicity to various agents
     Route: 065
     Dates: start: 20221201, end: 20221201
  3. PAROXETINE [Suspect]
     Active Substance: PAROXETINE
     Indication: Toxicity to various agents
     Route: 065
     Dates: start: 20221201, end: 20221201
  4. ZOPICLONE [Suspect]
     Active Substance: ZOPICLONE
     Indication: Toxicity to various agents
     Route: 065
     Dates: start: 20221201, end: 20221201
  5. TERALITHE [Suspect]
     Active Substance: LITHIUM CARBONATE
     Indication: Toxicity to various agents
     Route: 065
     Dates: start: 20221201, end: 20221201
  6. PRAZEPAM [Suspect]
     Active Substance: PRAZEPAM
     Indication: Toxicity to various agents
     Route: 065
     Dates: start: 20221201, end: 20221201

REACTIONS (5)
  - Hypothermia [Recovering/Resolving]
  - Troponin increased [Recovering/Resolving]
  - Hypotension [Recovering/Resolving]
  - Coma [Recovering/Resolving]
  - Electrocardiogram repolarisation abnormality [Recovering/Resolving]

NARRATIVE: CASE EVENT DATE: 20221201
